FAERS Safety Report 21929737 (Version 1)
Quarter: 2023Q1

REPORT INFORMATION
  Report Type: Spontaneous
  Country: US (occurrence: US)
  Receive Date: 20230131
  Receipt Date: 20230131
  Transmission Date: 20230417
  Serious: Yes (Other)
  Sender: FDA-Public Use
  Company Number: US-AMGEN-USASP2023014596

PATIENT
  Age: 11 Year
  Sex: Male

DRUGS (3)
  1. RITUXIMAB [Suspect]
     Active Substance: RITUXIMAB
     Indication: New onset refractory status epilepticus
     Dosage: UNK
     Route: 065
  2. PRIVIGEN [Concomitant]
     Active Substance: HUMAN IMMUNOGLOBULIN G
     Indication: New onset refractory status epilepticus
     Dosage: UNK
     Route: 040
  3. ANAKINRA [Concomitant]
     Active Substance: ANAKINRA
     Indication: New onset refractory status epilepticus
     Dosage: UNK
     Route: 065

REACTIONS (3)
  - Seizure [Unknown]
  - Drug ineffective for unapproved indication [Unknown]
  - Off label use [Unknown]
